FAERS Safety Report 7549143-4 (Version None)
Quarter: 2011Q2

REPORT INFORMATION
  Report Type: 
  Country: None (occurrence: None)
  Receive Date: 20110615
  Receipt Date: 20110601
  Transmission Date: 20111010
  Serious: Yes (Hospitalization, Other)
  Sender: FDA-Public Use
  Company Number: PHHY2011US23975

PATIENT
  Sex: Male
  Weight: 72.562 kg

DRUGS (4)
  1. CELEBREX [Concomitant]
  2. ENBREL [Concomitant]
  3. RECLAST [Suspect]
     Indication: OSTEOPENIA
     Dosage: 5 MG EVERY TWO YEAR
     Route: 042
     Dates: start: 20110310
  4. PREDNISONE [Concomitant]

REACTIONS (5)
  - OEDEMA MOUTH [None]
  - SWOLLEN TONGUE [None]
  - PENIS DISORDER [None]
  - HYPERSENSITIVITY [None]
  - BLOOD PRESSURE INCREASED [None]
